FAERS Safety Report 6682922-4 (Version None)
Quarter: 2010Q2

REPORT INFORMATION
  Report Type: 
  Country: None (occurrence: None)
  Receive Date: 20100415
  Receipt Date: 20100410
  Transmission Date: 20101027
  Serious: Yes (Death)
  Sender: FDA-Public Use
  Company Number: B0647496A

PATIENT
  Age: 48 Year
  Sex: Male

DRUGS (2)
  1. AUGMENTIN '125' [Suspect]
     Indication: RESPIRATORY TRACT INFECTION
     Dosage: 1G PER DAY
     Route: 048
     Dates: start: 20100228, end: 20100228
  2. CLARICID [Suspect]
     Indication: DRUG USE FOR UNKNOWN INDICATION
     Dates: start: 20100228, end: 20100228

REACTIONS (1)
  - SUDDEN DEATH [None]
